FAERS Safety Report 8909244 (Version 1)
Quarter: 2012Q4

REPORT INFORMATION
  Report Type: Spontaneous
  Country: DK (occurrence: None)
  Receive Date: 20121106
  Receipt Date: 20121106
  Transmission Date: 20130627
  Serious: Yes (Other)
  Sender: FDA-Public Use
  Company Number: 2012MA012774

PATIENT
  Age: 32 Year
  Sex: Male

DRUGS (1)
  1. DOXYCYCLINE HYCLATE [Suspect]
     Indication: PROSTATITIS
     Route: 048
     Dates: start: 20120612

REACTIONS (5)
  - Anxiety [None]
  - Flashback [None]
  - Paranoia [None]
  - Panic attack [None]
  - Impaired work ability [None]
